FAERS Safety Report 16847825 (Version 5)
Quarter: 2021Q3

REPORT INFORMATION
  Report Type: Other
  Country: US (occurrence: US)
  Receive Date: 20190924
  Receipt Date: 20210921
  Transmission Date: 20211014
  Serious: No
  Sender: FDA-Public Use
  Company Number: US-ACORDA-ACO_160279_2019

PATIENT
  Age: 62 Year
  Sex: Male

DRUGS (4)
  1. INBRIJA [Suspect]
     Active Substance: LEVODOPA
     Indication: PARKINSON^S DISEASE
     Dosage: 84 MILLIGRAM, PRN, UPTO 5 TIMES DAILY
     Dates: start: 20190613, end: 201907
  2. INBRIJA [Suspect]
     Active Substance: LEVODOPA
     Indication: ON AND OFF PHENOMENON
  3. RYTARY [Concomitant]
     Active Substance: CARBIDOPA\LEVODOPA
     Indication: PRODUCT USED FOR UNKNOWN INDICATION
     Dosage: UNK
     Route: 065
  4. CARBIDOPA AND LEVODOPA [Concomitant]
     Active Substance: CARBIDOPA\LEVODOPA
     Indication: PRODUCT USED FOR UNKNOWN INDICATION
     Dosage: 25?100MG: 1 TABLET EVERY 1 AND 1/2HR FOR TOTAL OF 16 TABS QD
     Route: 048

REACTIONS (10)
  - Parkinson^s disease [Not Recovered/Not Resolved]
  - Cough [Recovering/Resolving]
  - Device difficult to use [Unknown]
  - Incorrect dose administered [Unknown]
  - Cough [Unknown]
  - Condition aggravated [Recovering/Resolving]
  - Dysphagia [Unknown]
  - Respiratory tract congestion [Recovering/Resolving]
  - Device occlusion [Unknown]
  - Fall [Recovering/Resolving]

NARRATIVE: CASE EVENT DATE: 20190724
